FAERS Safety Report 12001274 (Version 1)
Quarter: 2016Q1

REPORT INFORMATION
  Report Type: Other
  Country: US (occurrence: US)
  Receive Date: 20160204
  Receipt Date: 20160204
  Transmission Date: 20160526
  Serious: Yes (Other)
  Sender: FDA-Public Use
  Company Number: US-ENDO PHARMACEUTICALS INC-2016-000767

PATIENT
  Age: 36 Year
  Sex: Male

DRUGS (1)
  1. RHEUMATREX [Suspect]
     Active Substance: METHOTREXATE SODIUM
     Indication: PYODERMA GANGRENOSUM
     Route: 065

REACTIONS (2)
  - Condition aggravated [Recovered/Resolved]
  - Pyoderma gangrenosum [Recovered/Resolved]
